FAERS Safety Report 24188085 (Version 1)
Quarter: 2024Q3

REPORT INFORMATION
  Report Type: Spontaneous
  Country: IT (occurrence: IT)
  Receive Date: 20240808
  Receipt Date: 20240808
  Transmission Date: 20241017
  Serious: Yes (Life-Threatening, Hospitalization)
  Sender: STRIDES
  Company Number: None

PATIENT
  Age: 74 Year
  Sex: Male

DRUGS (8)
  1. AMOXICILLIN [Suspect]
     Active Substance: AMOXICILLIN
     Indication: Antibiotic therapy
     Dosage: 1 GRAM, BID
     Route: 065
  2. DEXAMETHASONE [Suspect]
     Active Substance: DEXAMETHASONE
     Indication: COVID-19
     Dosage: 4 MILLIGRAM, 2 CAPSULE/DAY FOR 28DAYS
     Route: 065
  3. MOMETASONE [Suspect]
     Active Substance: MOMETASONE
     Indication: Sinusitis
     Dosage: 50 MILLIGRAM, SPRAY, FOR 20 DAYS
     Route: 065
  4. MOMETASONE [Suspect]
     Active Substance: MOMETASONE
     Indication: Bacterial infection
  5. AZITHROMYCIN [Suspect]
     Active Substance: AZITHROMYCIN
     Indication: Antibiotic therapy
     Dosage: 500 MILLIGRAM, QD
     Route: 048
  6. CEFDITOREN PIVOXIL [Suspect]
     Active Substance: CEFDITOREN PIVOXIL
     Indication: Antibiotic therapy
     Dosage: 400 MILLIGRAM, BID
     Route: 048
  7. ACETYLCYSTEINE [Suspect]
     Active Substance: ACETYLCYSTEINE
     Indication: Sinusitis
     Dosage: UNK, FOR 17 DAYS
     Route: 065
  8. ACETYLCYSTEINE [Suspect]
     Active Substance: ACETYLCYSTEINE
     Indication: Bacterial infection

REACTIONS (4)
  - Aspergillosis oral [Recovered/Resolved]
  - Sinusitis [Recovered/Resolved]
  - Rhinitis [Recovered/Resolved]
  - Mucormycosis [Recovered/Resolved]
